FAERS Safety Report 9799541 (Version 1)
Quarter: 2014Q1

REPORT INFORMATION
  Report Type: Spontaneous
  Country: US (occurrence: US)
  Receive Date: 20140106
  Receipt Date: 20140106
  Transmission Date: 20141002
  Serious: No
  Sender: FDA-Public Use
  Company Number: US-GILEAD-2010-0030126

PATIENT
  Age: 77 Year
  Sex: Male
  Weight: 89.81 kg

DRUGS (14)
  1. LETAIRIS [Suspect]
     Indication: PULMONARY ARTERIAL HYPERTENSION
     Route: 048
     Dates: start: 20100609
  2. WARFARIN [Concomitant]
  3. ASPIRIN [Concomitant]
  4. FUROSEMIDE [Concomitant]
  5. HYZAAR [Concomitant]
  6. METOPROLOL [Concomitant]
  7. DIGOXIN [Concomitant]
  8. ZOCOR [Concomitant]
  9. PRILOSEC [Concomitant]
  10. AVODART [Concomitant]
  11. FLOMAX [Concomitant]
  12. AF-IBUPROFEN [Concomitant]
  13. MAGNESIUM [Concomitant]
  14. KLOR-CON [Concomitant]

REACTIONS (1)
  - Unevaluable event [Unknown]
